FAERS Safety Report 7598628-3 (Version None)
Quarter: 2011Q3

REPORT INFORMATION
  Report Type: 
  Country: None (occurrence: None)
  Receive Date: 20110710
  Receipt Date: 20110629
  Transmission Date: 20111222
  Serious: Yes (Hospitalization, Other)
  Sender: FDA-Public Use
  Company Number: US-ABBOTT-11R-163-0835449-00

PATIENT
  Weight: 1.939 kg

DRUGS (1)
  1. SURVANTA [Suspect]
     Indication: PRODUCT USED FOR UNKNOWN INDICATION
     Dosage: INTRATRACHEAL INSTILLATION @ 4 ML/KG
     Route: 050
     Dates: start: 20110627, end: 20110627

REACTIONS (4)
  - DRUG INEFFECTIVE [None]
  - SEPSIS [None]
  - NEONATAL RESPIRATORY DISTRESS SYNDROME [None]
  - CONTINUOUS POSITIVE AIRWAY PRESSURE [None]
